FAERS Safety Report 25713910 (Version 1)
Quarter: 2025Q3

REPORT INFORMATION
  Report Type: Spontaneous
  Country: EU (occurrence: EU)
  Receive Date: 20250822
  Receipt Date: 20250822
  Transmission Date: 20251020
  Serious: Yes (Hospitalization, Other)
  Sender: ASTELLAS
  Company Number: EU-ASTELLAS-2025-AER-044329

PATIENT
  Age: 42 Year
  Sex: Female

DRUGS (20)
  1. TACROLIMUS [Suspect]
     Active Substance: TACROLIMUS
     Indication: Renal transplant
     Dosage: RESIDUAL DOSAGE INITIAL (RDI)- 4.3 NG/ML, RESIDUAL DOSAGE FINAL (RDF)- 5.9 NG/ML
     Route: 065
     Dates: start: 20210415, end: 20210825
  2. TACROLIMUS [Suspect]
     Active Substance: TACROLIMUS
     Dosage: RESIDUAL DOSAGE INITIAL (RDI)- 4.6 NG/ML, RESIDUAL DOSAGE FINAL (RDF)- NA, ON 04-SEP-2021- RESIDUAL
     Route: 065
     Dates: start: 20210825, end: 20211109
  3. TACROLIMUS [Suspect]
     Active Substance: TACROLIMUS
     Dosage: RESIDUAL DOSAGE INITIAL (RDI)- 6.2 NG/ML, RESIDUAL DOSAGE FINAL (RDF)- 3.2 NG/ML
     Route: 065
     Dates: start: 20211109, end: 20220818
  4. TACROLIMUS [Suspect]
     Active Substance: TACROLIMUS
     Dosage: ON 18-AUG-2022- RESIDUAL DOSAGE INITIAL (RDI)- 5.3 NG/ML, RESIDUAL DOSAGE FINAL (RDF)- NA, ON 13-SEP
     Route: 065
     Dates: start: 20220818, end: 20231003
  5. TACROLIMUS [Suspect]
     Active Substance: TACROLIMUS
     Dosage: ON 03-OCT-2023- RESIDUAL DOSAGE INITIAL (RDI)- 4.4 NG/ML, RESIDUAL DOSAGE FINAL (RDF)- 3.5 NG/ML, ON
     Route: 065
     Dates: start: 20231003, end: 20240103
  6. TACROLIMUS [Suspect]
     Active Substance: TACROLIMUS
     Dosage: RESIDUAL DOSAGE INITIAL (RDI)- 4.3 NG/ML
     Route: 065
     Dates: start: 20240103, end: 20240109
  7. TACROLIMUS [Suspect]
     Active Substance: TACROLIMUS
     Dosage: RESIDUAL DOSAGE INITIAL (RDI)- 4.6 NG/ML
     Route: 065
     Dates: start: 20240109, end: 20240116
  8. TACROLIMUS [Suspect]
     Active Substance: TACROLIMUS
     Dosage: RESIDUAL DOSAGE INITIAL (RDI)- 5.3 NG/ML
     Route: 065
     Dates: start: 20240116, end: 20240123
  9. TACROLIMUS [Suspect]
     Active Substance: TACROLIMUS
     Dosage: RESIDUAL DOSAGE INITIAL (RDI)- 3.4 NG/ML
     Route: 065
     Dates: start: 20240123, end: 20240130
  10. TACROLIMUS [Suspect]
     Active Substance: TACROLIMUS
     Dosage: RESIDUAL DOSAGE INITIAL (RDI)- 6.5 NG/ML
     Route: 065
     Dates: start: 20240130, end: 20240207
  11. TACROLIMUS [Suspect]
     Active Substance: TACROLIMUS
     Dosage: RESIDUAL DOSAGE INITIAL (RDI)- 5.1 NG/ML
     Route: 065
     Dates: start: 20240207, end: 20240330
  12. TACROLIMUS [Suspect]
     Active Substance: TACROLIMUS
     Dosage: RESIDUAL DOSAGE INITIAL (RDI)- 5.5 NG/ML, RESIDUAL DOSAGE FINAL (RDF)- 4.1 NG/ML
     Route: 065
     Dates: start: 20240330
  13. TACROLIMUS [Suspect]
     Active Substance: TACROLIMUS
     Route: 065
     Dates: start: 2019, end: 20210415
  14. MEGLUMINE ANTIMONIATE [Suspect]
     Active Substance: MEGLUMINE ANTIMONIATE
     Indication: Visceral leishmaniasis
     Dosage: SBV+/KG/DAY
     Route: 042
     Dates: start: 20240603, end: 2024
  15. MEGLUMINE ANTIMONIATE [Suspect]
     Active Substance: MEGLUMINE ANTIMONIATE
     Dosage: REINTRODUCED TO REDUCED DOSE 3-4 MG SBV+/KG/DAY, ALLOWING COMPLETION OF A 28-DAY FULL TREATMENT COUR
     Route: 042
     Dates: start: 2024
  16. MYCOPHENOLATE MOFETIL [Concomitant]
     Active Substance: MYCOPHENOLATE MOFETIL
     Indication: Renal transplant
     Route: 065
     Dates: start: 2019, end: 20211022
  17. MYCOPHENOLATE MOFETIL [Concomitant]
     Active Substance: MYCOPHENOLATE MOFETIL
     Route: 065
     Dates: start: 20211022, end: 20220818
  18. PREDNISOLONE [Concomitant]
     Active Substance: PREDNISOLONE
     Indication: Renal transplant
     Route: 065
     Dates: start: 2019, end: 2024
  19. PREDNISOLONE [Concomitant]
     Active Substance: PREDNISOLONE
     Route: 065
     Dates: start: 2024
  20. TRIMEPRAZINE [Concomitant]
     Active Substance: TRIMEPRAZINE
     Indication: Product used for unknown indication
     Route: 065
     Dates: end: 20240603

REACTIONS (4)
  - Visceral leishmaniasis [Recovered/Resolved]
  - Infection [Recovered/Resolved]
  - Nephropathy toxic [Not Recovered/Not Resolved]
  - Disease recurrence [Not Recovered/Not Resolved]

NARRATIVE: CASE EVENT DATE: 20210415
